FAERS Safety Report 14393272 (Version 1)
Quarter: 2018Q1

REPORT INFORMATION
  Report Type: Spontaneous
  Country: US (occurrence: US)
  Receive Date: 20180112
  Receipt Date: 20180112
  Transmission Date: 20180509
  Serious: No
  Sender: FDA-Public Use
  Company Number: None

PATIENT
  Sex: Male

DRUGS (25)
  1. TYLENOL [Concomitant]
     Active Substance: ACETAMINOPHEN
  2. ZYRTEC [Concomitant]
     Active Substance: CETIRIZINE HYDROCHLORIDE
  3. ZYPREXA [Concomitant]
     Active Substance: OLANZAPINE
  4. SIMETHICONE (DIMETHICONE) [Concomitant]
     Active Substance: DIMETHICONE
  5. SYMBICORT [Concomitant]
     Active Substance: BUDESONIDE\FORMOTEROL FUMARATE DIHYDRATE
  6. FLORAJEN ACIDOPHILUS [Concomitant]
  7. PROAIR HFA [Concomitant]
     Active Substance: ALBUTEROL SULFATE
  8. LAMICTAL [Concomitant]
     Active Substance: LAMOTRIGINE
  9. CYANOCOBALAM [Concomitant]
  10. ADVAIR DISKUS [Concomitant]
     Active Substance: FLUTICASONE PROPIONATE\SALMETEROL XINAFOATE
  11. EMLA [Concomitant]
     Active Substance: LIDOCAINE\PRILOCAINE
  12. ZOFRAN [Concomitant]
     Active Substance: ONDANSETRON HYDROCHLORIDE
  13. COMPAZINE [Concomitant]
     Active Substance: PROCHLORPERAZINE MALEATE
  14. ZINC OXIDE. [Concomitant]
     Active Substance: ZINC OXIDE
  15. VITAMIN D [Concomitant]
     Active Substance: CHOLECALCIFEROL
  16. LOPERAMIDE [Concomitant]
     Active Substance: LOPERAMIDE
  17. MEPHYTON [Concomitant]
     Active Substance: PHYTONADIONE
  18. KLONOPIN [Concomitant]
     Active Substance: CLONAZEPAM
  19. KEPPRA [Concomitant]
     Active Substance: LEVETIRACETAM
  20. ATIVAN [Concomitant]
     Active Substance: LORAZEPAM
  21. PRILOSEC [Concomitant]
     Active Substance: OMEPRAZOLE MAGNESIUM
  22. LONSURF [Suspect]
     Active Substance: TIPIRACIL HYDROCHLORIDE\TRIFLURIDINE
     Indication: COLON CANCER
     Route: 048
     Dates: start: 20171018
  23. PREVALITE [Concomitant]
     Active Substance: CHOLESTYRAMINE
  24. SYNTHROID [Concomitant]
     Active Substance: LEVOTHYROXINE SODIUM
  25. KENALOG [Concomitant]
     Active Substance: TRIAMCINOLONE ACETONIDE

REACTIONS (2)
  - White blood cell count decreased [None]
  - Therapy cessation [None]
